FAERS Safety Report 8921884 (Version 1)
Quarter: 2012Q4

REPORT INFORMATION
  Report Type: 
  Country: US (occurrence: US)
  Receive Date: 20121121
  Receipt Date: 20121121
  Transmission Date: 20130627
  Serious: Yes (Hospitalization)
  Sender: FDA-Public Use
  Company Number: US-ELI_LILLY_AND_COMPANY-US201211004156

PATIENT
  Sex: Female

DRUGS (11)
  1. BYETTA [Suspect]
     Indication: TYPE 2 DIABETES MELLITUS
     Dosage: 5 ug, bid
     Route: 058
     Dates: start: 201208
  2. JANUMET [Concomitant]
     Indication: TYPE 2 DIABETES MELLITUS
     Dosage: 1 DF, bid
     Route: 048
  3. METFORMIN [Concomitant]
     Indication: TYPE 2 DIABETES MELLITUS
     Dosage: 500 mg, bid
     Route: 048
  4. VICTOZA [Concomitant]
     Indication: TYPE 2 DIABETES MELLITUS
     Dosage: UNK, unknown
     Route: 058
  5. LEVOTHYROXINE [Concomitant]
     Dosage: 100 ug, each morning
     Route: 048
  6. VALPROIC ACID [Concomitant]
     Dosage: 250 mg, bid
     Route: 048
  7. ECOTRIN [Concomitant]
     Dosage: 325 mg, qd
     Route: 048
  8. TOPAMAX [Concomitant]
     Dosage: UNK
     Route: 048
  9. MIRTAZAPINE [Concomitant]
     Dosage: UNK
     Route: 048
  10. COLCRYS [Concomitant]
     Dosage: 0.6 mg, bid
     Route: 048
  11. LYRICA [Concomitant]
     Dosage: 75 mg, bid
     Route: 048

REACTIONS (6)
  - Peripheral artery thrombosis [Unknown]
  - Pain in extremity [Unknown]
  - Cataract [Not Recovered/Not Resolved]
  - Blood glucose increased [Unknown]
  - Prothrombin time prolonged [Unknown]
  - International normalised ratio increased [Unknown]
